FAERS Safety Report 11707376 (Version 1)
Quarter: 2015Q4

REPORT INFORMATION
  Report Type: Spontaneous
  Country: US (occurrence: US)
  Receive Date: 20151104
  Receipt Date: 20151104
  Transmission Date: 20160304
  Serious: No
  Sender: FDA-Public Use
  Company Number: US-ELI_LILLY_AND_COMPANY-US201102005510

PATIENT
  Age: 71 Year
  Sex: Female

DRUGS (4)
  1. HUMULIN N [Concomitant]
     Active Substance: INSULIN HUMAN
  2. MEVACOR [Concomitant]
     Active Substance: LOVASTATIN
  3. FORTEO [Suspect]
     Active Substance: TERIPARATIDE
     Indication: OSTEOPOROSIS
     Dosage: 20 UG, DAILY (1/D)
     Dates: start: 20110117
  4. MOEXIPRIL [Concomitant]
     Active Substance: MOEXIPRIL HYDROCHLORIDE
     Indication: CARDIAC DISORDER

REACTIONS (4)
  - Balance disorder [Unknown]
  - Upper limb fracture [Recovering/Resolving]
  - Fall [Recovered/Resolved]
  - Pain [Recovering/Resolving]

NARRATIVE: CASE EVENT DATE: 20110128
